FAERS Safety Report 5875533-1 (Version None)
Quarter: 2008Q3

REPORT INFORMATION
  Report Type: 
  Country: None (occurrence: None)
  Receive Date: 20080909
  Receipt Date: 20080828
  Transmission Date: 20090109
  Serious: Yes (Death, Other)
  Sender: FDA-Public Use
  Company Number: US-ELI_LILLY_AND_COMPANY-US200808006347

PATIENT
  Age: 55 Year
  Sex: Male

DRUGS (1)
  1. FLUOXETINE HYDROCHLORIDE [Suspect]
     Dosage: UNK, UNKNOWN
     Route: 065

REACTIONS (2)
  - COMPLETED SUICIDE [None]
  - HOMICIDE [None]
